FAERS Safety Report 19846063 (Version 1)
Quarter: 2021Q3

REPORT INFORMATION
  Report Type: Spontaneous
  Country: US (occurrence: US)
  Receive Date: 20210915
  Receipt Date: 20210915
  Transmission Date: 20211014
  Serious: Yes (Other)
  Sender: FDA-Public Use
  Company Number: None

PATIENT
  Age: 74 Year
  Sex: Female
  Weight: 58.97 kg

DRUGS (3)
  1. ATORVASTATIN [Concomitant]
     Active Substance: ATORVASTATIN
  2. ASPIRIN. [Concomitant]
     Active Substance: ASPIRIN
  3. CLONIDINE 0.1MG TAB [Suspect]
     Active Substance: CLONIDINE
     Indication: HYPERTENSION
     Dosage: ?          QUANTITY:1 DF DOSAGE FORM;?
     Route: 048
     Dates: start: 202105

REACTIONS (13)
  - Apathy [None]
  - Inappropriate schedule of product administration [None]
  - Muscle spasms [None]
  - Dry skin [None]
  - Vision blurred [None]
  - Balance disorder [None]
  - Dry eye [None]
  - Feeling abnormal [None]
  - Product complaint [None]
  - Insomnia [None]
  - Muscular weakness [None]
  - Constipation [None]
  - Blood pressure increased [None]

NARRATIVE: CASE EVENT DATE: 20210511
